FAERS Safety Report 19855640 (Version 1)
Quarter: 2021Q3

REPORT INFORMATION
  Report Type: Report from Study
  Country: None (occurrence: US)
  Receive Date: 20210920
  Receipt Date: 20210920
  Transmission Date: 20211014
  Serious: Yes (Hospitalization)
  Sender: FDA-Public Use
  Company Number: US-ULTRAGENYX PHARMACEUTICAL INC.-US-UGNX-21-00315

PATIENT
  Sex: Female

DRUGS (1)
  1. DOJOLVI [Suspect]
     Active Substance: TRIHEPTANOIN
     Indication: FATTY ACID OXIDATION DISORDER
     Dosage: 70 ML DAILY, SPLIT INTO 3 DOSES OF 20 ML AND 1 DOSE OF 10 ML
     Route: 048
     Dates: start: 20201008

REACTIONS (3)
  - Metabolic disorder [Unknown]
  - Vomiting [Unknown]
  - Movement disorder [Unknown]
